FAERS Safety Report 17370148 (Version 1)
Quarter: 2020Q1

REPORT INFORMATION
  Report Type: Spontaneous
  Country: CN (occurrence: CN)
  Receive Date: 20200205
  Receipt Date: 20200205
  Transmission Date: 20200409
  Serious: Yes (Death, Other)
  Sender: FDA-Public Use
  Company Number: CN-ACCORD-171609

PATIENT
  Age: 55 Year
  Sex: Female

DRUGS (3)
  1. FELODIPINE. [Concomitant]
     Active Substance: FELODIPINE
     Indication: HYPERTENSION
     Route: 048
  2. IRINOTECAN [Suspect]
     Active Substance: IRINOTECAN
     Indication: METASTASES TO PELVIS
     Dosage: OXALIPLATIN 85 MG/M2 D1 PLUS IRINOTECAN 180 MG/M2 DL, Q14D
  3. OXALIPLATIN. [Suspect]
     Active Substance: OXALIPLATIN
     Indication: METASTASES TO PELVIS
     Dosage: OXALIPLATIN 85 MG/M2 D1 PLUS IRINOTECAN 180 MG/M2 DL, Q14D

REACTIONS (4)
  - General physical health deterioration [Unknown]
  - Weight decreased [Unknown]
  - White blood cell count decreased [Unknown]
  - Thrombocytopenia [Unknown]
